FAERS Safety Report 8624818-4 (Version None)
Quarter: 2012Q3

REPORT INFORMATION
  Report Type: 
  Country: None (occurrence: None)
  Receive Date: 20120827
  Receipt Date: 20120824
  Transmission Date: 20120928
  Serious: Yes (Death, Hospitalization, Disabling)
  Sender: FDA-Public Use
  Company Number: US-JNJFOC-20120702548

PATIENT
  Sex: Female
  Weight: 72 kg

DRUGS (27)
  1. XARELTO [Suspect]
     Indication: CEREBROVASCULAR ACCIDENT PROPHYLAXIS
     Route: 048
     Dates: start: 20120117, end: 20120118
  2. TYLENOL [Concomitant]
     Dosage: AS NEEDED
     Route: 048
  3. TEKTURNA [Concomitant]
     Indication: HYPERTENSION
     Route: 048
  4. CELEXA [Concomitant]
     Indication: DEPRESSION
  5. XARELTO [Suspect]
     Dosage: DAILY AT 5 PM
     Route: 048
     Dates: start: 20120101
  6. XARELTO [Suspect]
     Indication: ATRIAL FIBRILLATION
     Route: 048
     Dates: start: 20120117, end: 20120118
  7. LORTAB [Concomitant]
  8. ASCORBIC ACID [Concomitant]
  9. MAGNESIUM HYDROXIDE TAB [Concomitant]
     Indication: DYSPEPSIA
     Dosage: AS NEEDED
     Route: 048
  10. LANOXIN [Concomitant]
     Route: 048
  11. HYDROCODONE [Concomitant]
     Dosage: DOSE REPORTED AS 5/500 EVERY 6 HOURS PRN
  12. MILK OF MAGNESIA TAB [Concomitant]
     Indication: CONSTIPATION
     Route: 048
  13. HYDRALAZINE HCL [Concomitant]
     Indication: BLOOD PRESSURE SYSTOLIC
     Dosage: AS NEEDED
     Route: 042
  14. ICAPS [Concomitant]
     Indication: GLAUCOMA
  15. XANAX [Concomitant]
     Route: 048
  16. LESCOL XL [Concomitant]
     Indication: HYPERLIPIDAEMIA
  17. XARELTO [Suspect]
     Dosage: DAILY AT 5 PM
     Route: 048
     Dates: start: 20120101
  18. REGULAR INSULIN [Concomitant]
     Dosage: SLIDING SCALE
  19. ARICEPT [Concomitant]
  20. MAGNESIUM OXIDE [Concomitant]
  21. CIPROFLOXACIN HCL [Concomitant]
     Dosage: 400 MG/200 ML EVERY 12 HOURS
     Route: 042
  22. LEVEMIR [Concomitant]
     Dosage: 20 UNITS EVERY MORNING
     Route: 058
  23. IMODIUM [Concomitant]
  24. VITAMIN [Concomitant]
  25. PERCOGESIC [Concomitant]
     Route: 048
  26. PEPCID [Concomitant]
  27. FISH OIL [Concomitant]

REACTIONS (12)
  - THROMBOSIS [None]
  - DYSPHAGIA [None]
  - CEREBROVASCULAR ACCIDENT [None]
  - LOSS OF CONSCIOUSNESS [None]
  - HAEMATOMA [None]
  - UNRESPONSIVE TO STIMULI [None]
  - SUBDURAL HAEMORRHAGE [None]
  - FALL [None]
  - DEATH [None]
  - GRAND MAL CONVULSION [None]
  - COMMUNICATION DISORDER [None]
  - LOWER GASTROINTESTINAL HAEMORRHAGE [None]
